FAERS Safety Report 4933324-X (Version None)
Quarter: 2006Q1

REPORT INFORMATION
  Report Type: 
  Country: None (occurrence: None)
  Receive Date: 20060301
  Receipt Date: 20060221
  Transmission Date: 20060701
  Serious: No
  Sender: FDA-Public Use
  Company Number: 06H-163-0305782-00

PATIENT
  Sex: Female

DRUGS (1)
  1. SODIUM CHLORIDE 0.9% INJECTION, USP, FLEX. PLASTIC CONTAINER (SODIUM C [Suspect]

REACTIONS (3)
  - BURNING SENSATION [None]
  - OCCUPATIONAL EXPOSURE TO TOXIC AGENT [None]
  - SKIN DISCOLOURATION [None]
